FAERS Safety Report 25086316 (Version 1)
Quarter: 2025Q1

REPORT INFORMATION
  Report Type: Spontaneous
  Country: CN (occurrence: CN)
  Receive Date: 20250317
  Receipt Date: 20250317
  Transmission Date: 20250409
  Serious: Yes (Other)
  Sender: ELI LILLY AND COMPANY
  Company Number: CN-Merck Healthcare KGaA-2025011420

PATIENT
  Age: 73 Year
  Sex: Female
  Weight: 59 kg

DRUGS (6)
  1. ERBITUX [Suspect]
     Active Substance: CETUXIMAB
     Indication: Small intestine carcinoma
     Route: 041
     Dates: start: 20250203, end: 20250203
  2. OXALIPLATIN [Suspect]
     Active Substance: OXALIPLATIN
     Indication: Colorectal cancer
     Dosage: 135 MG, DAILY
     Route: 041
     Dates: start: 20250203, end: 20250203
  3. FLUOROURACIL [Suspect]
     Active Substance: FLUOROURACIL
     Indication: Colorectal cancer
     Dosage: 3.3 G, DAILY
     Route: 041
     Dates: start: 20250203, end: 20250203
  4. SODIUM CHLORIDE [Concomitant]
     Active Substance: SODIUM CHLORIDE
     Indication: Medication dilution
     Dosage: 220 MG, DAILY
     Route: 041
     Dates: start: 20250203, end: 20250203
  5. SODIUM CHLORIDE [Concomitant]
     Active Substance: SODIUM CHLORIDE
     Dosage: 250 MG, DAILY
     Route: 041
     Dates: start: 20250203, end: 20250203
  6. DEXTROSE [Concomitant]
     Active Substance: DEXTROSE MONOHYDRATE
     Indication: Medication dilution
     Dosage: 500 ML, DAILY
     Route: 041
     Dates: start: 20250203, end: 20250203

REACTIONS (1)
  - Neutropenia [Recovering/Resolving]

NARRATIVE: CASE EVENT DATE: 20250224
